FAERS Safety Report 10167658 (Version 1)
Quarter: 2014Q2

REPORT INFORMATION
  Report Type: Spontaneous
  Country: DE (occurrence: DE)
  Receive Date: 20140512
  Receipt Date: 20140512
  Transmission Date: 20141212
  Serious: Yes (Other)
  Sender: FDA-Public Use
  Company Number: DE-UCBSA-120456

PATIENT
  Age: 31 Year
  Sex: Female

DRUGS (1)
  1. KEPPRA [Suspect]
     Dosage: 750MG; 4 TIMES 0.5 TABLET A DAY

REACTIONS (4)
  - Abortion [Unknown]
  - Generalised tonic-clonic seizure [Unknown]
  - Wrong technique in drug usage process [Unknown]
  - Pregnancy [Recovered/Resolved]
